FAERS Safety Report 6996569-3 (Version None)
Quarter: 2010Q3

REPORT INFORMATION
  Report Type: 
  Country: None (occurrence: None)
  Receive Date: 20100918
  Receipt Date: 20090318
  Transmission Date: 20110219
  Serious: Yes (Hospitalization, Other)
  Sender: FDA-Public Use
  Company Number: US-WYE-H08706509

PATIENT
  Age: 82 Year
  Sex: Female

DRUGS (1)
  1. CORDAREX [Suspect]
     Indication: ATRIAL FIBRILLATION
     Route: 048
     Dates: start: 20090314, end: 20090316

REACTIONS (2)
  - DRUG INEFFECTIVE [None]
  - PULMONARY OEDEMA [None]
